FAERS Safety Report 7261074-6 (Version None)
Quarter: 2011Q1

REPORT INFORMATION
  Report Type: 
  Country: None (occurrence: None)
  Receive Date: 20110130
  Receipt Date: 20101229
  Transmission Date: 20110831
  Serious: No
  Sender: FDA-Public Use
  Company Number: US-ABBOTT-10P-163-0694200-00

PATIENT
  Sex: Female
  Weight: 71.278 kg

DRUGS (3)
  1. HUMIRA [Suspect]
     Indication: PSORIASIS
     Dates: start: 20101215
  2. METHOTREXATE [Concomitant]
     Indication: PSORIASIS
  3. LEVOTHYROXINE SODIUM [Concomitant]
     Indication: HORMONE REPLACEMENT THERAPY

REACTIONS (3)
  - DRUG INEFFECTIVE [None]
  - THROAT IRRITATION [None]
  - INFLUENZA [None]
